FAERS Safety Report 9802160 (Version 1)
Quarter: 2014Q1

REPORT INFORMATION
  Report Type: Spontaneous
  Country: US (occurrence: US)
  Receive Date: 20140107
  Receipt Date: 20140107
  Transmission Date: 20141002
  Serious: Yes (Hospitalization)
  Sender: FDA-Public Use
  Company Number: US-B.I. PHARMACEUTICALS,INC./RIDGEFIELD-2014-BI-00348BP

PATIENT
  Age: 53 Year
  Sex: Female
  Weight: 49 kg

DRUGS (6)
  1. SPIRIVA [Suspect]
     Indication: CHRONIC OBSTRUCTIVE PULMONARY DISEASE
     Dosage: 18 MCG
     Route: 055
     Dates: start: 2013
  2. TRAZODONE [Concomitant]
     Indication: DEPRESSION
     Dosage: 50 MG
     Route: 048
  3. DAILY VITAMIN [Concomitant]
     Indication: ROUTINE HEALTH MAINTENANCE
     Route: 048
  4. RISPERIDONE [Concomitant]
     Indication: BIPOLAR DISORDER
     Dosage: 1 MG
     Route: 048
  5. LAMICTAL [Concomitant]
     Indication: BIPOLAR DISORDER
     Dosage: 50 MG
     Route: 048
  6. TRAMADOL [Concomitant]
     Indication: INTERVERTEBRAL DISC DEGENERATION
     Dosage: 400 MG
     Route: 048

REACTIONS (1)
  - Suicidal ideation [Recovered/Resolved]
